FAERS Safety Report 4335554-7 (Version None)
Quarter: 2004Q2

REPORT INFORMATION
  Report Type: 
  Country: None (occurrence: None)
  Receive Date: 20040406
  Receipt Date: 20040330
  Transmission Date: 20050107
  Serious: Yes (Hospitalization)
  Sender: FDA-Public Use
  Company Number: 2004201607US

PATIENT
  Age: 39 Year
  Sex: Female

DRUGS (1)
  1. BEXTRA [Suspect]
     Indication: HERNIA
     Dosage: 10 MG, BID, ORAL
     Route: 048
     Dates: start: 20040210, end: 20040218

REACTIONS (5)
  - DRUG TOXICITY [None]
  - EPIDERMOLYSIS [None]
  - ERYTHEMA MULTIFORME [None]
  - INSOMNIA [None]
  - THROAT TIGHTNESS [None]
